FAERS Safety Report 7216071-3 (Version None)
Quarter: 2011Q1

REPORT INFORMATION
  Report Type: 
  Country: None (occurrence: None)
  Receive Date: 20110107
  Receipt Date: 20101231
  Transmission Date: 20110831
  Serious: Yes (Hospitalization)
  Sender: FDA-Public Use
  Company Number: US-US-EMD SERONO, INC.-7034011

PATIENT
  Sex: Female
  Weight: 68 kg

DRUGS (4)
  1. PROZAC [Concomitant]
     Indication: MOOD ALTERED
     Route: 048
  2. ROBAXIN [Concomitant]
     Route: 048
  3. KAPIDEX [Concomitant]
     Route: 048
  4. REBIF [Suspect]
     Indication: MULTIPLE SCLEROSIS
     Route: 058
     Dates: start: 20060124, end: 20100701

REACTIONS (2)
  - TENDON RUPTURE [None]
  - ARTHRALGIA [None]
